FAERS Safety Report 8888841 (Version 4)
Quarter: 2013Q2

REPORT INFORMATION
  Report Type: Spontaneous
  Country: US (occurrence: US)
  Receive Date: 20121106
  Receipt Date: 20130501
  Transmission Date: 20140414
  Serious: No
  Sender: FDA-Public Use
  Company Number: US-ASTRAZENECA-2012SE83782

PATIENT
  Age: 54 Year
  Sex: Female

DRUGS (4)
  1. NEXIUM [Suspect]
     Indication: GASTROOESOPHAGEAL REFLUX DISEASE
     Route: 048
  2. NEXIUM [Suspect]
     Indication: OESOPHAGEAL ULCER
     Route: 048
  3. PRILOSEC [Suspect]
     Route: 048
  4. PRILOSEC OTC [Suspect]
     Route: 048

REACTIONS (8)
  - Cardiac disorder [Unknown]
  - Gastrooesophageal reflux disease [Unknown]
  - Pain [Unknown]
  - Oesophageal ulcer [Unknown]
  - Confusional state [Unknown]
  - Gastrooesophageal reflux disease [Unknown]
  - Malaise [Unknown]
  - Drug ineffective [Unknown]
